FAERS Safety Report 9940720 (Version 2)
Quarter: 2014Q1

REPORT INFORMATION
  Report Type: Spontaneous
  Country: US (occurrence: US)
  Receive Date: 20140303
  Receipt Date: 20140303
  Transmission Date: 20141002
  Serious: Yes (Hospitalization, Other)
  Sender: FDA-Public Use
  Company Number: US-US-EMD SERONO, INC.-220057K08USA

PATIENT
  Age: 5 Year
  Sex: Male
  Weight: 26.1 kg

DRUGS (4)
  1. SAIZEN [(SOMATROPIN (RDNA ORIGIN) FOR INJECTION)] [Suspect]
     Indication: GROWTH HORMONE DEFICIENCY
     Route: 058
     Dates: start: 20080330, end: 20080819
  2. SAIZEN [(SOMATROPIN (RDNA ORIGIN) FOR INJECTION)] [Suspect]
     Route: 058
     Dates: start: 20080907
  3. ACETAMINOPHEN W/CODEINE [Concomitant]
     Route: 048
  4. LUPRON [Concomitant]
     Indication: PUBERTY

REACTIONS (8)
  - Shunt malfunction [Recovered/Resolved]
  - Lethargy [Recovered/Resolved]
  - Headache [Recovered/Resolved]
  - Nausea [Recovered/Resolved]
  - Vomiting [Recovered/Resolved]
  - Deafness [Unknown]
  - Meningioma [Unknown]
  - Pain in extremity [Not Recovered/Not Resolved]
